FAERS Safety Report 14061407 (Version 1)
Quarter: 2017Q4

REPORT INFORMATION
  Report Type: Spontaneous
  Country: FR (occurrence: FR)
  Receive Date: 20171009
  Receipt Date: 20171009
  Transmission Date: 20180321
  Serious: Yes (Hospitalization)
  Sender: FDA-Public Use
  Company Number: FR-009507513-1710FRA001920

PATIENT
  Sex: Male

DRUGS (1)
  1. INEGY [Suspect]
     Active Substance: EZETIMIBE\SIMVASTATIN
     Indication: HYPERCHOLESTEROLAEMIA
     Dosage: 1 DF (10 MG/ 40 MG), QD
     Route: 048
     Dates: start: 20131017, end: 20170531

REACTIONS (2)
  - Muscle spasms [Recovered/Resolved]
  - Tendon rupture [Recovered/Resolved]
